FAERS Safety Report 10161869 (Version 1)
Quarter: 2014Q2

REPORT INFORMATION
  Report Type: Spontaneous
  Country: US (occurrence: None)
  Receive Date: 20140508
  Receipt Date: 20140508
  Transmission Date: 20141212
  Serious: No
  Sender: FDA-Public Use
  Company Number: None

PATIENT
  Age: 59 Year
  Sex: Female

DRUGS (1)
  1. HUMIRA 40MG ABBVIE [Suspect]
     Route: 058
     Dates: start: 20140318

REACTIONS (2)
  - Rash erythematous [None]
  - Rash pruritic [None]
